FAERS Safety Report 6610631-6 (Version None)
Quarter: 2010Q1

REPORT INFORMATION
  Report Type: 
  Country: None (occurrence: None)
  Receive Date: 20100302
  Receipt Date: 20100219
  Transmission Date: 20100710
  Serious: Yes (Death, Life-Threatening)
  Sender: FDA-Public Use
  Company Number: JP-ROCHE-685357

PATIENT

DRUGS (4)
  1. CELLCEPT [Suspect]
     Indication: RENAL TRANSPLANT
     Route: 048
  2. SIMULECT [Concomitant]
  3. PROGRAF [Concomitant]
  4. METHYLPREDNISOLONE [Concomitant]

REACTIONS (2)
  - ARRHYTHMIA [None]
  - DIABETIC AUTONOMIC NEUROPATHY [None]
